FAERS Safety Report 12685918 (Version 1)
Quarter: 2016Q3

REPORT INFORMATION
  Report Type: Spontaneous
  Country: CA (occurrence: CA)
  Receive Date: 20160825
  Receipt Date: 20160825
  Transmission Date: 20161109
  Serious: Yes (Other)
  Sender: FDA-Public Use
  Company Number: CA-HQ SPECIALTY-CA-2016INT000779

PATIENT
  Age: 60 Year
  Sex: Female

DRUGS (5)
  1. XELJANZ [Suspect]
     Active Substance: TOFACITINIB CITRATE
     Indication: RHEUMATOID ARTHRITIS
     Dosage: 10 MG (5 MG,2 IN 1 D)
     Route: 048
     Dates: start: 20151212
  2. METHOTREXATE SODIUM. [Suspect]
     Active Substance: METHOTREXATE SODIUM
     Indication: PRODUCT USED FOR UNKNOWN INDICATION
     Dosage: 2.8571 MG (20 MG,1 IN 1 W)
     Route: 065
     Dates: start: 2010, end: 2013
  3. LEFLUNOMIDE. [Suspect]
     Active Substance: LEFLUNOMIDE
     Indication: RHEUMATOID ARTHRITIS
     Dosage: UNK
     Route: 065
  4. HYDROXYCHLOROQUINE [Suspect]
     Active Substance: HYDROXYCHLOROQUINE
     Indication: RHEUMATOID ARTHRITIS
     Dosage: UNK
     Route: 065
  5. SULFASALAZINE. [Suspect]
     Active Substance: SULFASALAZINE
     Indication: PRODUCT USED FOR UNKNOWN INDICATION
     Dosage: 1000 MG (500 MG,2 IN 1 D)
     Route: 048
     Dates: start: 2010, end: 2013

REACTIONS (7)
  - Malaise [Unknown]
  - Back pain [Recovering/Resolving]
  - Drug intolerance [Unknown]
  - Rheumatoid arthritis [Recovering/Resolving]
  - Myalgia [Recovering/Resolving]
  - Dysuria [Recovered/Resolved]
  - Drug ineffective [Unknown]
